FAERS Safety Report 16623140 (Version 3)
Quarter: 2019Q3

REPORT INFORMATION
  Report Type: Spontaneous
  Country: US (occurrence: US)
  Receive Date: 20190723
  Receipt Date: 20190913
  Transmission Date: 20191004
  Serious: Yes (Other)
  Sender: FDA-Public Use
  Company Number: US-LEXICON PHARMACEUTICALS, INC-19-1606-00715

PATIENT
  Sex: Female

DRUGS (2)
  1. TELOTRISTAT ETHYL [Suspect]
     Active Substance: TELOTRISTAT ETHYL
     Indication: CARCINOID SYNDROME
     Route: 048
  2. SANDOSTATIN [Concomitant]
     Active Substance: OCTREOTIDE ACETATE

REACTIONS (11)
  - Fatigue [Recovering/Resolving]
  - Nausea [Recovered/Resolved]
  - Night sweats [Not Recovered/Not Resolved]
  - Gastroenteritis viral [Recovered/Resolved]
  - Rash pruritic [Not Recovered/Not Resolved]
  - Constipation [Recovered/Resolved]
  - Neoplasm progression [Unknown]
  - Tongue dysplasia [Not Recovered/Not Resolved]
  - Flushing [Not Recovered/Not Resolved]
  - Pyrexia [Recovered/Resolved]
  - Dry mouth [Not Recovered/Not Resolved]
